FAERS Safety Report 9172110 (Version 3)
Quarter: 2013Q2

REPORT INFORMATION
  Report Type: Spontaneous
  Country: JP (occurrence: JP)
  Receive Date: 20130319
  Receipt Date: 20130422
  Transmission Date: 20140414
  Serious: Yes (Hospitalization, Other)
  Sender: FDA-Public Use
  Company Number: JP-009507513-1303JPN007835

PATIENT
  Age: 62 Year
  Sex: Female
  Weight: 56 kg

DRUGS (15)
  1. PEGINTRON [Suspect]
     Indication: CHRONIC HEPATITIS C
     Dosage: 80 MICROGRAM PER KILOGRAM, QW
     Route: 058
     Dates: start: 20130201, end: 20130215
  2. PEGINTRON [Suspect]
     Dosage: 80 MICROGRAM PER KILOGRAM, QW
     Route: 058
     Dates: start: 20130308
  3. REBETOL [Suspect]
     Indication: CHRONIC HEPATITIS C
     Dosage: 600 MG, QD
     Route: 048
     Dates: start: 20130201, end: 20130206
  4. REBETOL [Suspect]
     Dosage: 400 MG, QD
     Route: 048
     Dates: start: 20130207, end: 20130214
  5. REBETOL [Suspect]
     Dosage: 200 MG, QD
     Route: 048
     Dates: start: 20130215, end: 20130220
  6. REBETOL [Suspect]
     Dosage: 200 MG, QD
     Route: 048
     Dates: start: 20130308
  7. TELAVIC [Suspect]
     Indication: CHRONIC HEPATITIS C
     Dosage: 2250MG,QD
     Route: 048
     Dates: start: 20130201, end: 20130220
  8. OLMETEC [Concomitant]
     Dosage: 10 G, QD, FORMULATION:POR
     Route: 048
  9. MAGNESIUM OXIDE [Concomitant]
     Dosage: 3 G, QD
     Route: 048
  10. ZYLORIC [Concomitant]
     Dosage: 300 MG, QD
     Route: 048
  11. LAC-B [Concomitant]
     Dosage: 3.0 G, QD
     Route: 048
  12. PURSENNID (SENNOSIDES) [Concomitant]
     Dosage: 24 MG PER DAY, PRN
     Route: 048
  13. VICTOZA [Concomitant]
     Dosage: 0.6 MG, QD
     Route: 058
  14. MS COOL SHIPPU [Concomitant]
     Dosage: 40 G PER DAY, AS NEEDED
     Route: 061
     Dates: start: 20130217, end: 20130218
  15. CALONAL [Concomitant]
     Dosage: 300 MG/ DAY, AS NEEDED, FORMULATION:POR
     Route: 048

REACTIONS (3)
  - Loss of consciousness [Recovered/Resolved]
  - Renal impairment [Recovering/Resolving]
  - Malaise [Recovering/Resolving]
